FAERS Safety Report 20364048 (Version 2)
Quarter: 2022Q1

REPORT INFORMATION
  Report Type: Report from Study
  Country: AT (occurrence: AT)
  Receive Date: 20220121
  Receipt Date: 20220207
  Transmission Date: 20220423
  Serious: Yes (Hospitalization)
  Sender: FDA-Public Use
  Company Number: AT-PFIZER INC-202101830902

PATIENT
  Age: 11 Year
  Sex: Female

DRUGS (15)
  1. INOTUZUMAB OZOGAMICIN [Suspect]
     Active Substance: INOTUZUMAB OZOGAMICIN
     Indication: Acute lymphocytic leukaemia
     Dosage: 0.59 MG
     Route: 042
     Dates: start: 20211207, end: 20211221
  2. VINCRISTINE SULFATE [Suspect]
     Active Substance: VINCRISTINE SULFATE
     Dosage: 1.8 MG
     Route: 042
     Dates: start: 20211209, end: 20211223
  3. METHOTREXATE SODIUM [Suspect]
     Active Substance: METHOTREXATE SODIUM
     Dosage: 15 MG
     Route: 037
     Dates: start: 20211207, end: 20211214
  4. METHYLPREDNISOLONE SODIUM SUCCINATE [Suspect]
     Active Substance: METHYLPREDNISOLONE SODIUM SUCCINATE
     Dosage: 35 MG
     Route: 042
     Dates: start: 20211214, end: 20211214
  5. DEXAMETHASONE [Suspect]
     Active Substance: DEXAMETHASONE
     Dosage: 4 MG
     Route: 042
     Dates: start: 20211207, end: 20211207
  6. DEXAMETHASONE [Suspect]
     Active Substance: DEXAMETHASONE
     Dosage: 4 MG
     Route: 048
     Dates: start: 20211207, end: 20211225
  7. VIROPEL [Concomitant]
     Indication: Prophylaxis
     Dosage: 1 G
     Route: 048
     Dates: start: 20181017, end: 20220110
  8. CECLOR [Concomitant]
     Active Substance: CEFACLOR
     Indication: Leukocyturia
     Dosage: 1500 MG
     Route: 048
     Dates: start: 20211212, end: 20211218
  9. SULFAMETHOXAZOLE\TRIMETHOPRIM [Concomitant]
     Active Substance: SULFAMETHOXAZOLE\TRIMETHOPRIM
     Indication: Prophylaxis
     Dosage: 80 MG 3X/W
     Route: 048
     Dates: start: 20180717, end: 20220110
  10. ENALAPRIL [Concomitant]
     Active Substance: ENALAPRIL
     Indication: Hypertension
     Dosage: 5 MG
     Route: 048
     Dates: start: 20211220, end: 20211222
  11. ENALAPRIL [Concomitant]
     Active Substance: ENALAPRIL
     Dosage: 15 MG
     Route: 048
     Dates: start: 20211223, end: 20220110
  12. LEVOMEPROMAZINE [Concomitant]
     Active Substance: LEVOMEPROMAZINE
     Indication: Prophylaxis
     Dosage: 6.25 MG
     Route: 048
     Dates: start: 20211222, end: 20211227
  13. NOXAFIL [Concomitant]
     Active Substance: POSACONAZOLE
     Indication: Fungal infection
     Dosage: 300 MG
     Route: 048
     Dates: start: 20211226, end: 20211226
  14. NOXAFIL [Concomitant]
     Active Substance: POSACONAZOLE
     Dosage: 200 MG
     Route: 048
     Dates: start: 20211229, end: 20220110
  15. NOXAFIL [Concomitant]
     Active Substance: POSACONAZOLE
     Dosage: 250 UNK
     Route: 048
     Dates: start: 20211218, end: 20211222

REACTIONS (1)
  - Malaise [Recovered/Resolved]

NARRATIVE: CASE EVENT DATE: 20211216
